FAERS Safety Report 9766944 (Version 1)
Quarter: 2013Q4

REPORT INFORMATION
  Report Type: Spontaneous
  Country: US (occurrence: US)
  Receive Date: 20131217
  Receipt Date: 20131217
  Transmission Date: 20140711
  Serious: No
  Sender: FDA-Public Use
  Company Number: US-GLAXOSMITHKLINE-A1034611A

PATIENT
  Sex: Female

DRUGS (2)
  1. VOTRIENT [Suspect]
     Route: 061
  2. VALIUM [Concomitant]

REACTIONS (8)
  - Accidental exposure to product [Not Recovered/Not Resolved]
  - Burning sensation [Unknown]
  - Erythema [Unknown]
  - Nasal discomfort [Unknown]
  - Rhinorrhoea [Unknown]
  - Oropharyngeal pain [Unknown]
  - Pain in extremity [Unknown]
  - Skin fissures [Unknown]
